FAERS Safety Report 5002209-5 (Version None)
Quarter: 2006Q2

REPORT INFORMATION
  Report Type: 
  Country: None (occurrence: None)
  Receive Date: 20060511
  Receipt Date: 20060511
  Transmission Date: 20061013
  Serious: Yes (Hospitalization)
  Sender: FDA-Public Use
  Company Number: None

PATIENT
  Age: 69 Year
  Sex: Female
  Weight: 62 kg

DRUGS (10)
  1. HEPARIN [Suspect]
     Indication: THROMBOSIS PROPHYLAXIS
     Dosage: 5000 UNITS SC BID
     Route: 058
     Dates: start: 20060224, end: 20060309
  2. ALBUTEROL SULFATE AUTOHALER [Concomitant]
  3. ATENOLOL [Concomitant]
  4. BICITRA [Concomitant]
  5. DEXTROSE  5% INJ, SOLN [Concomitant]
  6. FELODIPINE SA [Concomitant]
  7. HEPARIN [Concomitant]
  8. IPRATROPIUM BR [Concomitant]
  9. METOPROLOL TARTRATE [Concomitant]
  10. PIPERACILLIN AND TAZOBACTAM [Concomitant]

REACTIONS (2)
  - ANTI-PLATELET ANTIBODY POSITIVE [None]
  - HEPARIN-INDUCED THROMBOCYTOPENIA [None]
